FAERS Safety Report 4883415-7 (Version None)
Quarter: 2006Q1

REPORT INFORMATION
  Report Type: 
  Country: None (occurrence: None)
  Receive Date: 20060113
  Receipt Date: 20060104
  Transmission Date: 20060701
  Serious: Yes (Other)
  Sender: FDA-Public Use
  Company Number: 2005168033

PATIENT
  Age: 76 Year
  Sex: Female

DRUGS (1)
  1. DIFLUCAN [Suspect]
     Indication: SYSTEMIC CANDIDA
     Dosage: 1600 MG (400 MG, 4 IN 1 D), ORAL
     Route: 048
     Dates: start: 20051205

REACTIONS (1)
  - DEATH [None]
